FAERS Safety Report 7485306-4 (Version None)
Quarter: 2011Q2

REPORT INFORMATION
  Report Type: 
  Country: None (occurrence: None)
  Receive Date: 20110517
  Receipt Date: 20100505
  Transmission Date: 20111010
  Serious: No
  Sender: FDA-Public Use
  Company Number: US-NOVEN-ALL1-2010-02650

PATIENT

DRUGS (2)
  1. GUMMY VITAMINS [Concomitant]
     Dosage: UNK, 1X/DAY:QD
     Route: 048
  2. DAYTRANA [Suspect]
     Dosage: 20 MG, 1X/DAY:QD
     Route: 062
     Dates: start: 20100201

REACTIONS (4)
  - BODY HEIGHT INCREASED [None]
  - WEIGHT INCREASED [None]
  - PRODUCT QUALITY ISSUE [None]
  - INCREASED APPETITE [None]
